FAERS Safety Report 21440972 (Version 1)
Quarter: 2022Q4

REPORT INFORMATION
  Report Type: Spontaneous
  Country: CN (occurrence: CN)
  Receive Date: 20221011
  Receipt Date: 20221011
  Transmission Date: 20230113
  Serious: Yes (Other)
  Sender: FDA-Public Use
  Company Number: CN-PFIZER INC-PV202200078785

PATIENT
  Age: 58 Year
  Sex: Female
  Weight: 63 kg

DRUGS (7)
  1. EPIRUBICIN HYDROCHLORIDE [Suspect]
     Active Substance: EPIRUBICIN HYDROCHLORIDE
     Indication: Neoplasm malignant
     Dosage: 160 MG, EVERY 3 WEEKS
     Route: 041
     Dates: start: 20220928, end: 20220928
  2. CYCLOPHOSPHAMIDE [Suspect]
     Active Substance: CYCLOPHOSPHAMIDE
     Indication: Neoplasm malignant
     Dosage: 1 G, CYCLIC: TWICE EVERY THREE WEEKS
     Route: 041
     Dates: start: 20220928, end: 20220928
  3. DEXAMETHASONE SODIUM PHOSPHATE [Concomitant]
     Active Substance: DEXAMETHASONE SODIUM PHOSPHATE
     Indication: Antiallergic therapy
     Dosage: 5.000 MG, 1X/DAY
     Route: 042
     Dates: start: 20220928, end: 20220928
  4. FAMOTIDINE [Concomitant]
     Active Substance: FAMOTIDINE
     Indication: Prophylaxis
     Dosage: 20.000 MG, 2X/DAY
     Route: 041
     Dates: start: 20220928, end: 20220928
  5. TROPISETRON HYDROCHLORIDE [Concomitant]
     Active Substance: TROPISETRON HYDROCHLORIDE
     Indication: Prophylaxis
     Dosage: 4.000 MG, 1X/DAY
     Route: 041
     Dates: start: 20220928, end: 20220928
  6. HUANG QI DUO TANG [Concomitant]
     Indication: Therapeutic procedure
     Dosage: 250.000 MG, 1X/DAY
     Route: 041
     Dates: start: 20220928, end: 20220928
  7. INOSINE [Concomitant]
     Active Substance: INOSINE
     Indication: Therapeutic procedure
     Dosage: 600.000 MG, 1X/DAY
     Route: 041
     Dates: start: 20220928, end: 20220928

REACTIONS (2)
  - Hepatic function abnormal [Recovering/Resolving]
  - Off label use [Unknown]

NARRATIVE: CASE EVENT DATE: 20221003
